FAERS Safety Report 16585071 (Version 2)
Quarter: 2019Q3

REPORT INFORMATION
  Report Type: Spontaneous
  Country: GB (occurrence: GB)
  Receive Date: 20190717
  Receipt Date: 20190829
  Transmission Date: 20191004
  Serious: Yes (Other)
  Sender: FDA-Public Use
  Company Number: GB-ROCHE-2357424

PATIENT
  Age: 68 Year
  Sex: Female

DRUGS (1)
  1. RITUXIMAB. [Suspect]
     Active Substance: RITUXIMAB
     Indication: B-CELL LYMPHOMA
     Route: 058

REACTIONS (4)
  - Vaginal discharge [Recovered/Resolved]
  - Vulvovaginitis streptococcal [Unknown]
  - Postmenopausal haemorrhage [Recovered/Resolved]
  - Vulvovaginal ulceration [Recovered/Resolved]
